FAERS Safety Report 7287162-6 (Version None)
Quarter: 2010Q4

REPORT INFORMATION
  Report Type: 
  Country: None (occurrence: None)
  Receive Date: 20101220
  Receipt Date: 20100127
  Transmission Date: 20110411
  Serious: Yes (Other)
  Sender: FDA-Public Use
  Company Number: A-US2009-30692

PATIENT
  Age: 41 Year
  Sex: Male
  Weight: 72.9 kg

DRUGS (7)
  1. ZAVESCA [Suspect]
     Indication: GAUCHER'S DISEASE
     Dosage: 100 MG, TID, ORAL
     Route: 048
     Dates: start: 20091026, end: 20091116
  2. SEREVENT [Concomitant]
  3. QVAR [Concomitant]
  4. ALLEGRA [Concomitant]
  5. CEREZYME [Concomitant]
  6. CALCIUM (CALCIUM CARBONATE) [Concomitant]
  7. VITAMIN D [Concomitant]

REACTIONS (4)
  - ABDOMINAL DISCOMFORT [None]
  - ABDOMINAL DISTENSION [None]
  - DIARRHOEA [None]
  - FLATULENCE [None]
